FAERS Safety Report 13929752 (Version 4)
Quarter: 2017Q4

REPORT INFORMATION
  Report Type: Spontaneous
  Country: JP (occurrence: JP)
  Receive Date: 20170901
  Receipt Date: 20171117
  Transmission Date: 20180320
  Serious: Yes (Life-Threatening, Hospitalization, Other)
  Sender: FDA-Public Use
  Company Number: JP-BRISTOL-MYERS SQUIBB COMPANY-BMS-2017-078099

PATIENT
  Age: 60 Year
  Sex: Male

DRUGS (1)
  1. OPDIVO [Suspect]
     Active Substance: NIVOLUMAB
     Indication: HEAD AND NECK CANCER METASTATIC
     Dosage: 3 MG/KG, Q2WK
     Route: 041
     Dates: start: 20170815, end: 20170815

REACTIONS (6)
  - Underdose [Unknown]
  - Face oedema [Not Recovered/Not Resolved]
  - Haemobilia [Recovered/Resolved]
  - Cholecystitis [Recovered/Resolved]
  - Gallbladder necrosis [Not Recovered/Not Resolved]
  - Vascular insufficiency [Unknown]

NARRATIVE: CASE EVENT DATE: 201708
